FAERS Safety Report 14353856 (Version 1)
Quarter: 2018Q1

REPORT INFORMATION
  Report Type: Spontaneous
  Country: FR (occurrence: FR)
  Receive Date: 20180105
  Receipt Date: 20180105
  Transmission Date: 20180509
  Serious: Yes (Other)
  Sender: FDA-Public Use
  Company Number: FR-MERCK KGAA-2038431

PATIENT
  Age: 52 Year
  Sex: Female
  Weight: 62 kg

DRUGS (2)
  1. NOVOTHYROX [Suspect]
     Active Substance: LEVOTHYROXINE SODIUM
     Indication: POSTPARTUM HYPOPITUITARISM
     Route: 048
     Dates: start: 20170302, end: 20170925
  2. EUTHYROX [Concomitant]
     Active Substance: LEVOTHYROXINE SODIUM
     Route: 048

REACTIONS (14)
  - Muscle spasms [Recovering/Resolving]
  - Gastrointestinal disorder [Not Recovered/Not Resolved]
  - Flatulence [Recovering/Resolving]
  - Tri-iodothyronine free decreased [Not Recovered/Not Resolved]
  - Bulimia nervosa [Recovering/Resolving]
  - Sleep disorder [Not Recovered/Not Resolved]
  - Nausea [Recovering/Resolving]
  - Affective disorder [Recovering/Resolving]
  - Weight increased [Not Recovered/Not Resolved]
  - Depression [Recovering/Resolving]
  - Memory impairment [Recovering/Resolving]
  - Fatigue [Recovering/Resolving]
  - Pain [Recovering/Resolving]
  - Tinnitus [Not Recovered/Not Resolved]

NARRATIVE: CASE EVENT DATE: 20170401
